FAERS Safety Report 4658801-0 (Version None)
Quarter: 2005Q2

REPORT INFORMATION
  Report Type: 
  Country: None (occurrence: None)
  Receive Date: 20050511
  Receipt Date: 20050127
  Transmission Date: 20051028
  Serious: Yes (Life-Threatening, Hospitalization)
  Sender: FDA-Public Use
  Company Number: US-ROCHE-394008

PATIENT
  Age: 53 Year
  Sex: Male

DRUGS (8)
  1. PEGASYS [Suspect]
     Indication: HEPATITIS C
     Route: 058
     Dates: start: 20040601
  2. PEGASYS [Suspect]
     Route: 058
     Dates: start: 20040707
  3. COPEGUS [Suspect]
     Indication: HEPATITIS C
     Route: 048
     Dates: start: 20040601
  4. COPEGUS [Suspect]
     Dosage: REDUCED TO AN UNKNOWN AMOUNT DUE TO ANAEMIA.
     Route: 048
  5. SYNTHROID [Concomitant]
     Dosage: TAKEN DAILY.
     Route: 048
  6. METOPROLOL TARTRATE [Concomitant]
     Indication: BLOOD PRESSURE INCREASED
     Dosage: TAKEN DAILY. TRADE NAME: TOPROL
     Route: 048
  7. NADOLOL [Concomitant]
     Indication: PORTAL HYPERTENSION
     Dosage: TAKEN DAILY.
     Route: 048
     Dates: start: 20040215
  8. PREVACID [Concomitant]
     Indication: DUODENAL ULCER
     Dosage: TAKEN DAILY.
     Route: 048
     Dates: start: 20041227

REACTIONS (8)
  - ANAEMIA [None]
  - BLOOD IRON INCREASED [None]
  - DIABETES MELLITUS INSULIN-DEPENDENT [None]
  - DUODENAL ULCER [None]
  - HAEMATOCHEZIA [None]
  - HAEMATOCRIT DECREASED [None]
  - VITAMIN B12 INCREASED [None]
  - WHITE BLOOD CELL COUNT DECREASED [None]
